FAERS Safety Report 7782605-3 (Version None)
Quarter: 2011Q3

REPORT INFORMATION
  Report Type: 
  Country: None (occurrence: None)
  Receive Date: 20110923
  Receipt Date: 20110913
  Transmission Date: 20111222
  Serious: Yes (Other)
  Sender: FDA-Public Use
  Company Number: US-1187185

PATIENT
  Age: 76 Year
  Sex: Female
  Weight: 79.3795 kg

DRUGS (10)
  1. HYDROCHLOROTHIAZIDE [Concomitant]
  2. MYOFLEX [Concomitant]
  3. LAXATIVES [Concomitant]
  4. AMLODIPINE [Concomitant]
  5. DIAZIDE [Concomitant]
  6. IBUPROFEN (ADVIL) [Concomitant]
  7. AZOPT [Suspect]
     Indication: GLAUCOMA
     Dosage: (1 GTT TID OU OPHTHALMIC); (1 GTT BID OU OPHTHALMIC); (1 GTT QD OU OPHTHALMIC); (1 GTT TID OU OPHTHA
     Route: 047
     Dates: start: 20101119
  8. AZOPT [Suspect]
     Indication: GLAUCOMA
     Dosage: (1 GTT TID OU OPHTHALMIC); (1 GTT BID OU OPHTHALMIC); (1 GTT QD OU OPHTHALMIC); (1 GTT TID OU OPHTHA
     Route: 047
     Dates: start: 20101022, end: 20110726
  9. LUMIGAN [Concomitant]
  10. LOPRESSOR [Concomitant]

REACTIONS (5)
  - HYPOACUSIS [None]
  - VISION BLURRED [None]
  - EAR CONGESTION [None]
  - EAR PAIN [None]
  - EAR INFECTION [None]
